FAERS Safety Report 7650570-5 (Version None)
Quarter: 2011Q3

REPORT INFORMATION
  Report Type: 
  Country: None (occurrence: None)
  Receive Date: 20110802
  Receipt Date: 20110727
  Transmission Date: 20111222
  Serious: Yes (Other)
  Sender: FDA-Public Use
  Company Number: GB-ABBOTT-11P-167-0842139-00

PATIENT
  Age: 28 Year
  Sex: Male

DRUGS (7)
  1. ZIDOVUDINE [Suspect]
     Indication: HIV INFECTION
  2. DARUNAVIR [Suspect]
     Indication: HIV INFECTION
  3. RITONAVIR [Suspect]
     Indication: HIV INFECTION
  4. CORTICOSTEROIDS [Suspect]
     Indication: PRODUCT USED FOR UNKNOWN INDICATION
  5. CEFOTAXIME [Concomitant]
     Indication: ENCEPHALITIS
  6. LAMIVUDINE [Suspect]
     Indication: HIV INFECTION
  7. ACYCLOVIR [Concomitant]
     Indication: ENCEPHALITIS

REACTIONS (1)
  - AMNESIA [None]
